FAERS Safety Report 25304727 (Version 1)
Quarter: 2025Q2

REPORT INFORMATION
  Report Type: Spontaneous
  Country: US (occurrence: None)
  Receive Date: 20250512
  Receipt Date: 20250512
  Transmission Date: 20250717
  Serious: Yes (unspecified)
  Sender: FDA-CTU
  Company Number: None

PATIENT
  Age: 42 Year
  Sex: Female

DRUGS (1)
  1. AMJEVITA [Suspect]
     Active Substance: ADALIMUMAB-ATTO
     Indication: Ankylosing spondylitis
     Dosage: 40MG EVERY OTHER WEEK

REACTIONS (5)
  - Breast cyst [None]
  - Sjogren^s syndrome [None]
  - Rash erythematous [None]
  - Vascular rupture [None]
  - Skin discolouration [None]
